FAERS Safety Report 6885963-7 (Version None)
Quarter: 2010Q3

REPORT INFORMATION
  Report Type: 
  Country: None (occurrence: None)
  Receive Date: 20100729
  Receipt Date: 20080825
  Transmission Date: 20110219
  Serious: Yes (Other)
  Sender: FDA-Public Use
  Company Number: US-PFIZER INC-2008070889

PATIENT
  Sex: Female

DRUGS (4)
  1. CELEBREX [Suspect]
     Indication: FIBROMYALGIA
     Route: 048
     Dates: end: 20080815
  2. FAMVIR [Concomitant]
  3. SERTRALINE HYDROCHLORIDE [Concomitant]
  4. REGLAN [Concomitant]

REACTIONS (2)
  - HOT FLUSH [None]
  - PYREXIA [None]
